FAERS Safety Report 24141642 (Version 1)
Quarter: 2024Q3

REPORT INFORMATION
  Report Type: Spontaneous
  Country: US (occurrence: US)
  Receive Date: 20240726
  Receipt Date: 20240726
  Transmission Date: 20241017
  Serious: Yes (Other)
  Sender: DOMPE FARMACEUTICI
  Company Number: US-FARMAPROD-202407-2622

PATIENT
  Age: 62 Year
  Sex: Female

DRUGS (14)
  1. OXERVATE [Suspect]
     Active Substance: CENEGERMIN-BKBJ
     Indication: Neurotrophic keratopathy
     Route: 047
     Dates: start: 20240617
  2. DICLOFENAC [Concomitant]
     Active Substance: DICLOFENAC
  3. REFRESH OPTIVE MEGA-3 [Concomitant]
     Active Substance: CARBOXYMETHYLCELLULOSE SODIUM\GLYCERIN\POLYSORBATE 80
  4. KLARITY (CHONDROITIN) [Concomitant]
  5. SYSTANE (HYPROMELLOSE 2910 (4000 MPA.S)) [Concomitant]
     Active Substance: HYPROMELLOSE 2910 (4000 MPA.S)
     Dosage: 0,3 %-0,4%
  6. BACLOFEN [Concomitant]
     Active Substance: BACLOFEN
  7. TRAMADOL HCL [Concomitant]
     Active Substance: TRAMADOL HYDROCHLORIDE
  8. VITAMIN D-400 [Concomitant]
  9. MAGNESIUM CITRATE [Concomitant]
     Active Substance: MAGNESIUM CITRATE
  10. MULTIVITAMIN 50 PLUS [Concomitant]
  11. METOPROLOL SUCCINATE [Concomitant]
     Active Substance: METOPROLOL SUCCINATE
  12. CARBAMAZEPINE [Concomitant]
     Active Substance: CARBAMAZEPINE
  13. DULOXETINE HYDROCHLORIDE [Concomitant]
     Active Substance: DULOXETINE HYDROCHLORIDE
  14. PREGABALIN [Concomitant]
     Active Substance: PREGABALIN

REACTIONS (6)
  - Knee operation [Unknown]
  - Product dose omission issue [Unknown]
  - Eye irritation [Unknown]
  - Headache [Unknown]
  - Foreign body in eye [Unknown]
  - Photophobia [Unknown]

NARRATIVE: CASE EVENT DATE: 20240704
